FAERS Safety Report 25284743 (Version 1)
Quarter: 2025Q2

REPORT INFORMATION
  Report Type: Spontaneous
  Country: US (occurrence: US)
  Receive Date: 20250508
  Receipt Date: 20250508
  Transmission Date: 20250717
  Serious: No
  Sender: COVIS PHARMA GMBH
  Company Number: US-AMAGP-2025COV00506

PATIENT
  Sex: Female

DRUGS (1)
  1. OMNARIS [Suspect]
     Active Substance: CICLESONIDE
     Indication: Product used for unknown indication
     Route: 045

REACTIONS (3)
  - Product dose omission issue [Unknown]
  - Malaise [Unknown]
  - Product supply issue [Unknown]
